FAERS Safety Report 21571044 (Version 1)
Quarter: 2022Q4

REPORT INFORMATION
  Report Type: Spontaneous
  Country: US (occurrence: US)
  Receive Date: 20221109
  Receipt Date: 20221109
  Transmission Date: 20230113
  Serious: No
  Sender: FDA-Public Use
  Company Number: US-ELI_LILLY_AND_COMPANY-US202210012661

PATIENT
  Age: 35 Year
  Sex: Female

DRUGS (2)
  1. MOUNJARO [Suspect]
     Active Substance: TIRZEPATIDE
     Indication: Metabolic syndrome
     Dosage: 5 MG, UNKNOWN
     Route: 058
     Dates: start: 20221012
  2. MOUNJARO [Suspect]
     Active Substance: TIRZEPATIDE
     Indication: Hypothyroidism
     Dosage: 2.55 MG, UNKNOWN
     Route: 058
     Dates: start: 20221019

REACTIONS (8)
  - Eating disorder [Unknown]
  - Feeling abnormal [Unknown]
  - Abdominal pain upper [Recovered/Resolved]
  - Vomiting [Recovered/Resolved]
  - Nausea [Recovered/Resolved]
  - Diarrhoea [Recovered/Resolved]
  - Decreased appetite [Recovered/Resolved]
  - Off label use [Unknown]

NARRATIVE: CASE EVENT DATE: 20221013
